FAERS Safety Report 14153754 (Version 2)
Quarter: 2018Q1

REPORT INFORMATION
  Report Type: Spontaneous
  Country: US (occurrence: US)
  Receive Date: 20171102
  Receipt Date: 20180201
  Transmission Date: 20180508
  Serious: No
  Sender: FDA-Public Use
  Company Number: US-SA-2017SA186478

PATIENT
  Age: 60 Year
  Sex: Female
  Weight: 79.3 kg

DRUGS (41)
  1. AMITIZA [Concomitant]
     Active Substance: LUBIPROSTONE
     Route: 065
  2. MODAFINIL. [Concomitant]
     Active Substance: MODAFINIL
     Route: 065
  3. PRALUENT [Suspect]
     Active Substance: ALIROCUMAB
     Indication: BLOOD CHOLESTEROL
     Route: 058
     Dates: start: 201708
  4. PRALUENT [Suspect]
     Active Substance: ALIROCUMAB
     Indication: HYPERLIPIDAEMIA
     Route: 058
     Dates: start: 201708
  5. ALIROCUMAB PREFILLED PEN [Suspect]
     Active Substance: ALIROCUMAB
     Indication: HYPERLIPIDAEMIA
     Dates: start: 201708
  6. INSULIN [Concomitant]
     Active Substance: INSULIN NOS
     Dosage: SHORT 31 GAUGE X 5/16
     Route: 065
  7. FLECTOR [Concomitant]
     Active Substance: DICLOFENAC EPOLAMINE
     Dosage: FORM: TRANSDERMAL PATCH
     Route: 062
  8. MELOXICAM. [Concomitant]
     Active Substance: MELOXICAM
     Route: 065
  9. METFORMIN [Concomitant]
     Active Substance: METFORMIN HYDROCHLORIDE
     Route: 048
  10. SODIUM BICARBONATE. [Concomitant]
     Active Substance: SODIUM BICARBONATE
     Route: 065
  11. BACLOFEN. [Concomitant]
     Active Substance: BACLOFEN
     Route: 065
  12. FLUTICASONE. [Concomitant]
     Active Substance: FLUTICASONE
     Dosage: FORM:SUSPENSION SPRAY
     Route: 045
  13. MAGNESIUM OXIDE. [Concomitant]
     Active Substance: MAGNESIUM OXIDE
     Route: 048
  14. MOVANTIK [Concomitant]
     Active Substance: NALOXEGOL OXALATE
     Route: 065
  15. OXYCODONE [Concomitant]
     Active Substance: OXYCODONE
     Route: 065
  16. PRALUENT [Suspect]
     Active Substance: ALIROCUMAB
     Indication: BLOOD CHOLESTEROL
     Route: 058
     Dates: start: 2017
  17. ADVAIR HFA [Concomitant]
     Active Substance: FLUTICASONE PROPIONATE\SALMETEROL XINAFOATE
     Indication: ASTHMA
     Route: 065
  18. ALBUTEROL SULFATE. [Concomitant]
     Active Substance: ALBUTEROL SULFATE
     Dosage: FORM: SOLUTION FOR NEBULIZATION
     Route: 065
  19. GABAPENTIN. [Concomitant]
     Active Substance: GABAPENTIN
     Dosage: 3 CAPSULE IN THE MORNING 3 CAPSULE AT NOON
  20. NEXIUM [Concomitant]
     Active Substance: ESOMEPRAZOLE MAGNESIUM
     Route: 048
  21. ZOVIRAX [Concomitant]
     Active Substance: ACYCLOVIR
     Dosage: FREQUENCY:5 TIMES PER DAY
     Route: 061
  22. ACYCLOVIR. [Concomitant]
     Active Substance: ACYCLOVIR
     Route: 061
  23. ADVAIR DISKUS [Concomitant]
     Active Substance: FLUTICASONE PROPIONATE\SALMETEROL XINAFOATE
     Dosage: FORM:POWDER FOR INHALATION
     Route: 048
  24. HUMALOG [Concomitant]
     Active Substance: INSULIN LISPRO
     Dosage: DOSE:70 UNIT(S)
     Route: 058
  25. MUPIROCIN. [Concomitant]
     Active Substance: MUPIROCIN
     Route: 061
  26. ONDANSETRON HYDROCHLORIDE. [Concomitant]
     Active Substance: ONDANSETRON HYDROCHLORIDE
     Route: 065
  27. PRALUENT [Suspect]
     Active Substance: ALIROCUMAB
     Indication: HYPERLIPIDAEMIA
     Route: 058
     Dates: start: 2017
  28. ALIROCUMAB PREFILLED PEN [Suspect]
     Active Substance: ALIROCUMAB
     Indication: BLOOD CHOLESTEROL
     Dates: start: 201708
  29. LIDOCAINE. [Concomitant]
     Active Substance: LIDOCAINE
     Dosage: FORM:PATHCHES
     Route: 061
  30. ALIROCUMAB PREFILLED PEN [Suspect]
     Active Substance: ALIROCUMAB
     Indication: BLOOD CHOLESTEROL
     Dates: start: 2017
  31. ALIROCUMAB PREFILLED PEN [Suspect]
     Active Substance: ALIROCUMAB
     Indication: HYPERLIPIDAEMIA
     Dates: start: 2017
  32. AMLODIPINE [Concomitant]
     Active Substance: AMLODIPINE BESYLATE
     Route: 048
  33. CLOPIDOGREL [Concomitant]
     Active Substance: CLOPIDOGREL BISULFATE
     Route: 065
  34. MS CONTIN [Concomitant]
     Active Substance: MORPHINE SULFATE
     Route: 065
  35. PROAIR HFA [Concomitant]
     Active Substance: ALBUTEROL SULFATE
     Route: 055
  36. TIZANIDINE. [Concomitant]
     Active Substance: TIZANIDINE
     Route: 065
  37. ALBUTEROL. [Concomitant]
     Active Substance: ALBUTEROL
  38. DIAZEPAM. [Concomitant]
     Active Substance: DIAZEPAM
     Route: 065
  39. HYDROCORTISONE ACETATE. [Concomitant]
     Active Substance: HYDROCORTISONE ACETATE
     Dosage: FORM:SUPPOSITORY
     Route: 054
  40. RAMIPRIL. [Concomitant]
     Active Substance: RAMIPRIL
     Route: 048
  41. SYMLIN [Concomitant]
     Active Substance: PRAMLINTIDE ACETATE
     Route: 058

REACTIONS (3)
  - Hot flush [Unknown]
  - Product use issue [Unknown]
  - Hyperhidrosis [Unknown]

NARRATIVE: CASE EVENT DATE: 2017
